FAERS Safety Report 9180309 (Version 1)
Quarter: 2013Q1

REPORT INFORMATION
  Report Type: Spontaneous
  Country: US (occurrence: US)
  Receive Date: 20130322
  Receipt Date: 20130322
  Transmission Date: 20140127
  Serious: Yes (Hospitalization)
  Sender: FDA-Public Use
  Company Number: US-AMGEN-USASP2013018483

PATIENT
  Age: 37 Year
  Sex: Female

DRUGS (1)
  1. ENBREL [Suspect]
     Indication: PSORIATIC ARTHROPATHY
     Dosage: 50 MG, QWK
     Dates: start: 20070101

REACTIONS (6)
  - Pancreatitis [Recovered/Resolved]
  - Nephrolithiasis [Recovered/Resolved]
  - Aphagia [Recovered/Resolved]
  - Abdominal distension [Recovered/Resolved]
  - Pneumonia [Recovered/Resolved]
  - Hepatitis C [Not Recovered/Not Resolved]
